FAERS Safety Report 23757223 (Version 1)
Quarter: 2024Q2

REPORT INFORMATION
  Report Type: Spontaneous
  Country: US (occurrence: None)
  Receive Date: 20240418
  Receipt Date: 20240418
  Transmission Date: 20240716
  Serious: No
  Sender: FDA-Public Use
  Company Number: None

PATIENT
  Age: 42 Year
  Sex: Female
  Weight: 54.9 kg

DRUGS (1)
  1. CLINDAMYCIN [Suspect]
     Active Substance: CLINDAMYCIN

REACTIONS (10)
  - Swelling [None]
  - Tongue coated [None]
  - Coating in mouth [None]
  - Chest discomfort [None]
  - Vision blurred [None]
  - Salivary hyposecretion [None]
  - Rash [None]
  - Depressed mood [None]
  - Oropharyngeal pain [None]
  - Urine output decreased [None]

NARRATIVE: CASE EVENT DATE: 20240404
